FAERS Safety Report 9381297 (Version 2)
Quarter: 2013Q4

REPORT INFORMATION
  Report Type: Spontaneous
  Country: GB (occurrence: GB)
  Receive Date: 20130703
  Receipt Date: 20131028
  Transmission Date: 20140711
  Serious: Yes (Hospitalization, Other)
  Sender: FDA-Public Use
  Company Number: GB-ACCORD-018281

PATIENT
  Age: 76 Year
  Sex: Male

DRUGS (7)
  1. RAMIPRIL [Concomitant]
  2. DILTIAZEM [Suspect]
     Indication: SUPRAVENTRICULAR TACHYCARDIA
     Dosage: ONE SINGLE DOSE
     Route: 048
     Dates: start: 20130606, end: 20130606
  3. BETAHISTINE [Concomitant]
  4. SIMVASTATIN [Concomitant]
  5. WARFARIN [Concomitant]
  6. FRUSEMIDE [Concomitant]
  7. AMLODIPINE [Suspect]
     Indication: HYPERTENSION
     Route: 048
     Dates: start: 20130606, end: 20130606

REACTIONS (3)
  - Renal failure acute [Recovered/Resolved]
  - Hypotension [Recovered/Resolved]
  - Hepatitis [Recovered/Resolved]
